FAERS Safety Report 6190445-4 (Version None)
Quarter: 2009Q2

REPORT INFORMATION
  Report Type: 
  Country: None (occurrence: None)
  Receive Date: 20090513
  Receipt Date: 20090513
  Transmission Date: 20091009
  Serious: Yes (Hospitalization)
  Sender: FDA-Public Use
  Company Number: None

PATIENT
  Age: 65 Year
  Sex: Male
  Weight: 72.5 kg

DRUGS (4)
  1. LOVENOX [Suspect]
     Indication: DEEP VEIN THROMBOSIS
     Dosage: 60 MG DAILY SQ, RECEIVED 4 DOSES TOTAL
     Route: 058
     Dates: start: 20090502, end: 20090505
  2. DILAUDID [Concomitant]
  3. NOVOLIN [Concomitant]
  4. TYLENOL [Concomitant]

REACTIONS (3)
  - GASTROINTESTINAL HAEMORRHAGE [None]
  - HAEMOGLOBIN DECREASED [None]
  - HYPOTENSION [None]
